FAERS Safety Report 5995212-X (Version None)
Quarter: 2008Q4

REPORT INFORMATION
  Report Type: 
  Country: None (occurrence: None)
  Receive Date: 20081212
  Receipt Date: 20080919
  Transmission Date: 20090506
  Serious: No
  Sender: FDA-Public Use
  Company Number: US-ABBOTT-08P-163-0478116-00

PATIENT
  Sex: Female
  Weight: 73.094 kg

DRUGS (16)
  1. HUMIRA [Suspect]
     Indication: RHEUMATOID ARTHRITIS
     Route: 050
     Dates: start: 20030101, end: 20080701
  2. HUMIRA [Suspect]
     Route: 050
     Dates: start: 20080924
  3. PREDNISONE TAB [Concomitant]
     Indication: RHEUMATOID ARTHRITIS
     Route: 048
     Dates: start: 19960101
  4. PREDNISONE TAB [Concomitant]
     Route: 048
  5. MULTI-VITAMIN [Concomitant]
     Indication: VITAMIN SUPPLEMENTATION
     Route: 048
  6. CALCIUM D3 [Concomitant]
     Indication: MINERAL SUPPLEMENTATION
     Route: 048
  7. ATENOLOL [Concomitant]
     Indication: BLOOD PRESSURE
     Route: 048
  8. ATENOLOL [Concomitant]
     Indication: CARDIAC DISORDER
  9. CYANOCOBALAMIN [Concomitant]
     Indication: VITAMIN SUPPLEMENTATION
  10. OMEPRAZOLE [Concomitant]
     Indication: GASTRIC DISORDER
     Route: 048
  11. SIMVASTATIN [Concomitant]
     Indication: BLOOD CHOLESTEROL
     Route: 048
  12. SOLIFENACIN [Concomitant]
     Indication: DRUG USE FOR UNKNOWN INDICATION
     Route: 048
  13. DILTIAZEM [Concomitant]
     Indication: BLOOD PRESSURE
     Route: 048
  14. DILTIAZEM [Concomitant]
     Indication: CARDIAC DISORDER
  15. CALCITONIN SALMON [Concomitant]
     Indication: MINERAL SUPPLEMENTATION
     Route: 048
  16. POLYGLYCOL [Concomitant]
     Indication: CONSTIPATION
     Route: 048

REACTIONS (5)
  - MUSCULOSKELETAL STIFFNESS [None]
  - PAIN [None]
  - RHEUMATOID ARTHRITIS [None]
  - SWELLING [None]
  - WEIGHT DECREASED [None]
